FAERS Safety Report 6029355-1 (Version None)
Quarter: 2009Q1

REPORT INFORMATION
  Report Type: 
  Country: None (occurrence: None)
  Receive Date: 20090105
  Receipt Date: 20081224
  Transmission Date: 20090719
  Serious: Yes (Death, Other)
  Sender: FDA-Public Use
  Company Number: 2008JP005406

PATIENT
  Age: 9 Year
  Sex: Female
  Weight: 14.5 kg

DRUGS (6)
  1. PROGRAF [Suspect]
     Indication: BONE MARROW TRANSPLANT
     Dosage: 0.38 MG, CONTINUOUS, IV NOS
     Route: 042
     Dates: start: 20080512, end: 20080825
  2. ALEVIATIN (PHENYTOIN) INJECTION [Concomitant]
  3. CLAFORAN [Concomitant]
  4. FUNGUARD (MICAFUNGIN) INJECTION [Concomitant]
  5. FOSCAVIR [Concomitant]
  6. NORAVID (DEFIBROTIDE) INJECTION [Concomitant]

REACTIONS (7)
  - CONVULSION [None]
  - PAIN [None]
  - PANCREATIC NECROSIS [None]
  - PERICARDIAL EFFUSION [None]
  - PNEUMOTHORAX [None]
  - PULMONARY CONGESTION [None]
  - RESPIRATORY FAILURE [None]
